FAERS Safety Report 7552440-X (Version None)
Quarter: 2011Q2

REPORT INFORMATION
  Report Type: 
  Country: None (occurrence: None)
  Receive Date: 20110616
  Receipt Date: 20110607
  Transmission Date: 20111010
  Serious: Yes (Other)
  Sender: FDA-Public Use
  Company Number: PHHY2011ES49793

PATIENT
  Age: 67 Year
  Sex: Male

DRUGS (6)
  1. LORAZEPAM [Concomitant]
  2. INSULIN ASPART [Concomitant]
  3. OMEPRAZOLE [Concomitant]
  4. METFORMIN HCL [Concomitant]
  5. TIAPRIDE [Concomitant]
  6. OCTREOTIDE ACETATE [Suspect]
     Dosage: 100 UG, Q8H
     Route: 058

REACTIONS (7)
  - SUPRAVENTRICULAR EXTRASYSTOLES [None]
  - GAIT DISTURBANCE [None]
  - GENERAL PHYSICAL HEALTH DETERIORATION [None]
  - BRADYPHRENIA [None]
  - HEART RATE DECREASED [None]
  - BLOOD PRESSURE DECREASED [None]
  - SINUS BRADYCARDIA [None]
